FAERS Safety Report 9235281 (Version 1)
Quarter: 2013Q2

REPORT INFORMATION
  Report Type: Spontaneous
  Country: US (occurrence: US)
  Receive Date: 20130417
  Receipt Date: 20130417
  Transmission Date: 20140414
  Serious: No
  Sender: FDA-Public Use
  Company Number: US-009507513-1304USA006510

PATIENT
  Age: 64 Year
  Sex: Male

DRUGS (6)
  1. SAPHRIS [Suspect]
     Indication: SCHIZOPHRENIA, PARANOID TYPE
     Dosage: 5 MG, BID
     Route: 060
     Dates: start: 20120304, end: 201210
  2. SAPHRIS [Suspect]
     Dosage: 5 MG, QPM
     Route: 060
     Dates: start: 20121026, end: 2012
  3. SAPHRIS [Suspect]
     Dosage: 10 MG, HS
     Route: 060
     Dates: start: 20121105
  4. SERTRALINE HYDROCHLORIDE [Concomitant]
     Dosage: UNK
  5. GABAPENTIN [Concomitant]
     Dosage: UNK UNK, TID
  6. FLUPHENAZINE [Concomitant]

REACTIONS (5)
  - Dysphagia [Not Recovered/Not Resolved]
  - Extrapyramidal disorder [Not Recovered/Not Resolved]
  - Akathisia [Not Recovered/Not Resolved]
  - Underdose [Unknown]
  - Inappropriate schedule of drug administration [Unknown]
